FAERS Safety Report 11265908 (Version 1)
Quarter: 2015Q3

REPORT INFORMATION
  Report Type: Spontaneous
  Country: GB (occurrence: US)
  Receive Date: 20150713
  Receipt Date: 20150713
  Transmission Date: 20151125
  Serious: Yes (Hospitalization)
  Sender: FDA-Public Use
  Company Number: GB-MPIJNJ-2012-08388

PATIENT
  Age: 64 Year
  Sex: Female
  Weight: 71.4 kg

DRUGS (5)
  1. ASPIRIN. [Concomitant]
     Active Substance: ASPIRIN
     Indication: PRODUCT USED FOR UNKNOWN INDICATION
  2. VELCADE [Suspect]
     Active Substance: BORTEZOMIB
     Indication: PLASMA CELL MYELOMA
     Route: 042
  3. ACYCLOVIR                          /00587301/ [Concomitant]
     Active Substance: ACYCLOVIR
     Indication: PRODUCT USED FOR UNKNOWN INDICATION
  4. VALTREX [Concomitant]
     Active Substance: VALACYCLOVIR HYDROCHLORIDE
     Indication: PRODUCT USED FOR UNKNOWN INDICATION
  5. BEVACIZUMAB [Suspect]
     Active Substance: BEVACIZUMAB
     Indication: PLASMA CELL MYELOMA
     Dosage: 1065 MG, Q3WEEKS
     Route: 042
     Dates: start: 20090224

REACTIONS (3)
  - Apnoea [Unknown]
  - Dyspnoea [Recovered/Resolved]
  - Dizziness [Unknown]

NARRATIVE: CASE EVENT DATE: 20090303
